FAERS Safety Report 18852844 (Version 1)
Quarter: 2021Q1

REPORT INFORMATION
  Report Type: Spontaneous
  Country: US (occurrence: US)
  Receive Date: 20210205
  Receipt Date: 20210205
  Transmission Date: 20210420
  Serious: Yes (Other)
  Sender: FDA-Public Use
  Company Number: US-ELI_LILLY_AND_COMPANY-US202101012149

PATIENT
  Sex: Female

DRUGS (9)
  1. HUMALOG [Suspect]
     Active Substance: INSULIN LISPRO
     Indication: TYPE 1 DIABETES MELLITUS
     Dosage: 10?11 U, EACH MORNING
     Route: 065
     Dates: start: 2018
  2. LANTUS [Concomitant]
     Active Substance: INSULIN GLARGINE
     Indication: TYPE 1 DIABETES MELLITUS
     Dosage: 10 U, DAILY NIGHT
  3. HUMALOG [Suspect]
     Active Substance: INSULIN LISPRO
     Indication: TYPE 1 DIABETES MELLITUS
     Dosage: 10?11 U, EACH MORNING
     Route: 065
     Dates: start: 2018
  4. HUMALOG [Suspect]
     Active Substance: INSULIN LISPRO
     Dosage: 13?15 U, BID LUNCH AND DINNER
     Route: 065
     Dates: start: 2018
  5. HUMALOG [Suspect]
     Active Substance: INSULIN LISPRO
     Dosage: 13?15 U, BID LUNCH AND DINNER
     Route: 065
  6. HUMALOG [Suspect]
     Active Substance: INSULIN LISPRO
     Dosage: 10?11 U, EACH MORNING
     Route: 065
  7. HUMALOG [Suspect]
     Active Substance: INSULIN LISPRO
     Dosage: 13?15 U, BID LUNCH AND DINNER
     Route: 065
     Dates: start: 2018
  8. HUMALOG [Suspect]
     Active Substance: INSULIN LISPRO
     Dosage: 13?15 U, BID LUNCH AND DINNER
     Route: 065
  9. HUMALOG [Suspect]
     Active Substance: INSULIN LISPRO
     Dosage: 10?11 U, EACH MORNING
     Route: 065

REACTIONS (2)
  - Blood glucose abnormal [Not Recovered/Not Resolved]
  - Hepatic cancer [Not Recovered/Not Resolved]
